FAERS Safety Report 8574780-8 (Version None)
Quarter: 2012Q3

REPORT INFORMATION
  Report Type: 
  Country: None (occurrence: None)
  Receive Date: 20120807
  Receipt Date: 20120802
  Transmission Date: 20120928
  Serious: Yes (Other)
  Sender: FDA-Public Use
  Company Number: AT-AMGEN-AUTSP2012048307

PATIENT
  Sex: Male

DRUGS (6)
  1. VECTIBIX [Suspect]
     Indication: COLON NEOPLASM
     Dosage: 6 MG/KG, UNK
     Dates: start: 20110801
  2. NEURONTIN [Concomitant]
  3. DIOVAN [Concomitant]
  4. CYMBALTA [Concomitant]
  5. BISOPROLOL FUMARATE [Concomitant]
  6. XYZAL [Concomitant]

REACTIONS (5)
  - LACERATION [None]
  - PAIN OF SKIN [None]
  - SKIN EXFOLIATION [None]
  - RASH [None]
  - SKIN FISSURES [None]
